FAERS Safety Report 22756005 (Version 5)
Quarter: 2024Q1

REPORT INFORMATION
  Report Type: Report from Study
  Country: US (occurrence: US)
  Receive Date: 20230727
  Receipt Date: 20240220
  Transmission Date: 20240410
  Serious: Yes (Hospitalization, Other)
  Sender: FDA-Public Use
  Company Number: US-ABBVIE-5342277

PATIENT
  Sex: Male

DRUGS (4)
  1. VENETOCLAX [Suspect]
     Active Substance: VENETOCLAX
     Indication: B-cell lymphoma
     Dosage: FORM STRENGTH WAS 100 MILLIGRAM.
     Route: 048
     Dates: start: 2023, end: 2023
  2. VENETOCLAX [Suspect]
     Active Substance: VENETOCLAX
     Indication: B-cell lymphoma
     Dosage: FORM STRENGTH WAS 100 MILLIGRAM.?TAKE 4 TABLETS BY MOUTH ONCE DAILY WITH FOOD AND A FULL GLASS OF...
     Route: 048
     Dates: start: 20230208
  3. VENETOCLAX [Suspect]
     Active Substance: VENETOCLAX
     Indication: B-cell lymphoma
     Dosage: FORM STRENGTH WAS 100 MILLIGRAM.
     Route: 048
     Dates: start: 2023
  4. VENETOCLAX [Suspect]
     Active Substance: VENETOCLAX
     Indication: B-cell lymphoma
     Dosage: FORM STRENGTH: 100 MILLIGRAM
     Route: 048

REACTIONS (8)
  - Pulmonary oedema [Recovered/Resolved]
  - Medical device pain [Unknown]
  - Feeling abnormal [Unknown]
  - Asthenia [Recovering/Resolving]
  - White blood cell count decreased [Recovering/Resolving]
  - Stomatitis [Recovering/Resolving]
  - Hepatic enzyme increased [Recovering/Resolving]
  - Pain [Unknown]

NARRATIVE: CASE EVENT DATE: 20230101
